FAERS Safety Report 15780766 (Version 4)
Quarter: 2019Q2

REPORT INFORMATION
  Report Type: Report from Study
  Country: None (occurrence: US)
  Receive Date: 20190102
  Receipt Date: 20190409
  Transmission Date: 20190711
  Serious: Yes (Hospitalization)
  Sender: FDA-Public Use
  Company Number: US-ABBVIE-18K-163-2591168-00

PATIENT
  Age: 84 Year
  Sex: Female

DRUGS (2)
  1. HUMIRA [Suspect]
     Active Substance: ADALIMUMAB
     Indication: RHEUMATOID ARTHRITIS
     Route: 058
  2. HUMIRA [Suspect]
     Active Substance: ADALIMUMAB
     Route: 058
     Dates: start: 201901

REACTIONS (23)
  - Arthralgia [Unknown]
  - Urinary incontinence [Not Recovered/Not Resolved]
  - Articular calcification [Not Recovered/Not Resolved]
  - Fatigue [Recovered/Resolved]
  - Diabetes mellitus [Recovering/Resolving]
  - Vomiting [Not Recovered/Not Resolved]
  - Haematochezia [Recovered/Resolved]
  - Anal incontinence [Recovered/Resolved]
  - Cough [Recovered/Resolved]
  - Road traffic accident [Unknown]
  - Dyspnoea [Not Recovered/Not Resolved]
  - Influenza [Not Recovered/Not Resolved]
  - Heart rate increased [Recovering/Resolving]
  - Heart valve incompetence [Recovered/Resolved]
  - Diverticulitis [Recovered/Resolved]
  - Swelling [Unknown]
  - Gait inability [Unknown]
  - Pain [Recovered/Resolved]
  - Pain [Unknown]
  - Cognitive disorder [Not Recovered/Not Resolved]
  - Visual impairment [Not Recovered/Not Resolved]
  - Joint range of motion decreased [Not Recovered/Not Resolved]
  - Mobility decreased [Not Recovered/Not Resolved]

NARRATIVE: CASE EVENT DATE: 20190301
